FAERS Safety Report 9126647 (Version 2)
Quarter: 2013Q2

REPORT INFORMATION
  Report Type: Report from Study
  Country: US (occurrence: US)
  Receive Date: 20130117
  Receipt Date: 20130502
  Transmission Date: 20140414
  Serious: Yes (Other)
  Sender: FDA-Public Use
  Company Number: US-ROCHE-1179120

PATIENT
  Age: 60 Year
  Sex: Female
  Weight: 76.4 kg

DRUGS (5)
  1. VISMODEGIB [Suspect]
     Indication: SMALL CELL LUNG CANCER EXTENSIVE STAGE
     Route: 048
     Dates: start: 20110214
  2. VISMODEGIB [Suspect]
     Dosage: THE LAST DOSE PRIOR TO THE ABDOMINAL PAIN WAS ON 12/MAY/2011. TOTAL DOSE ADMINISTERED IN CYCLE 5 WAS
     Route: 048
     Dates: start: 20110512, end: 20110603
  3. VISMODEGIB [Suspect]
     Dosage: THE TOTAL DOSE ADMINISTERED IN CYCLE 7 WAS 2700 MG.
     Route: 048
     Dates: start: 20110611, end: 20110726
  4. ETOPOSIDE [Suspect]
     Indication: SMALL CELL LUNG CANCER EXTENSIVE STAGE
     Dosage: THE LAST DOSE PRIOR TO THE EVENTS WAS ON 09/MAR/2011.
     Route: 042
     Dates: start: 20110214, end: 20110423
  5. CISPLATIN [Suspect]
     Indication: SMALL CELL LUNG CANCER EXTENSIVE STAGE
     Dosage: THE LAST DOSE PRIOR TO THE EVENTS WAS ON 07/MAR/2011.
     Route: 042
     Dates: start: 20110214, end: 20110421

REACTIONS (2)
  - Insomnia [Recovering/Resolving]
  - Fatigue [Recovering/Resolving]
